FAERS Safety Report 5397390-2 (Version None)
Quarter: 2007Q3

REPORT INFORMATION
  Report Type: 
  Country: None (occurrence: None)
  Receive Date: 20070726
  Receipt Date: 20070719
  Transmission Date: 20080115
  Serious: Yes (Other)
  Sender: FDA-Public Use
  Company Number: PHBS2007JP11327

PATIENT
  Age: 59 Year
  Sex: Female

DRUGS (12)
  1. ZOMETA [Suspect]
     Indication: METASTASES TO BONE
     Dosage: 4 MG, UNK
     Route: 041
     Dates: start: 20060810, end: 20070524
  2. TAMOFEN [Concomitant]
     Indication: BREAST CANCER
     Dosage: 20 MG/DAY
     Route: 048
     Dates: start: 20070125
  3. OMEPRAZOLE [Concomitant]
     Indication: REFLUX GASTRITIS
     Dosage: 20 MG/DAY
     Route: 048
     Dates: start: 20060527, end: 20070718
  4. GEMZAR [Concomitant]
     Dosage: 1500/DAY OR 1200 MG/DAY
     Route: 041
     Dates: start: 20070426
  5. GASMOTIN [Concomitant]
     Indication: GASTRITIS
     Dosage: 15 MG/DAY
     Route: 048
     Dates: start: 20060527, end: 20070718
  6. PAXIL [Concomitant]
     Indication: DEPRESSION
     Dosage: 20 MG/DAY OR 10 MG/DAY
     Route: 048
     Dates: start: 20061102
  7. CEFTRIAXONE SODIUM [Concomitant]
     Indication: PERIODONTITIS
     Dosage: 1 G/DAY
     Route: 041
     Dates: start: 20070621
  8. INDISETRON [Concomitant]
     Indication: VOMITING
     Dosage: 8 MG/DAY
     Route: 048
     Dates: start: 20070426
  9. SEROTONE [Concomitant]
     Indication: VOMITING
     Dosage: 10 MG/DAY
     Route: 041
     Dates: start: 20070426
  10. DECADRON [Concomitant]
     Indication: VOMITING
     Dosage: 20 MG/DAY
     Route: 041
     Dates: start: 20070426
  11. PROTECADIN [Concomitant]
     Indication: GASTRITIS
     Dosage: 10 MG/DAY
     Route: 048
     Dates: start: 20070719
  12. MUCOSTA [Concomitant]
     Indication: GASTRITIS
     Dosage: 300 MG/DAY
     Route: 048
     Dates: start: 20070719

REACTIONS (20)
  - ALANINE AMINOTRANSFERASE INCREASED [None]
  - ASPARTATE AMINOTRANSFERASE INCREASED [None]
  - BLOOD ALKALINE PHOSPHATASE INCREASED [None]
  - BLOOD CREATININE INCREASED [None]
  - BLOOD LACTATE DEHYDROGENASE INCREASED [None]
  - BREAST CANCER [None]
  - DRUG INEFFECTIVE [None]
  - GAMMA-GLUTAMYLTRANSFERASE INCREASED [None]
  - GINGIVAL SWELLING [None]
  - HAEMATOCRIT DECREASED [None]
  - HAEMOGLOBIN DECREASED [None]
  - MALIGNANT NEOPLASM PROGRESSION [None]
  - METASTASES TO BONE [None]
  - METASTASES TO LUNG [None]
  - OSTEONECROSIS [None]
  - PERIODONTITIS [None]
  - PURULENCE [None]
  - RED BLOOD CELL COUNT DECREASED [None]
  - TOOTHACHE [None]
  - WHITE BLOOD CELL ANALYSIS DECREASED [None]
